FAERS Safety Report 8238175-9 (Version None)
Quarter: 2012Q1

REPORT INFORMATION
  Report Type: 
  Country: None (occurrence: None)
  Receive Date: 20120327
  Receipt Date: 20120313
  Transmission Date: 20120608
  Serious: Yes (Hospitalization)
  Sender: FDA-Public Use
  Company Number: IN-ROCHE-1050452

PATIENT
  Age: 45 Year
  Sex: Male
  Weight: 68 kg

DRUGS (7)
  1. TRAMADOL HCL [Concomitant]
  2. ENOXAPARIN SODIUM [Concomitant]
  3. ATORVASTATIN [Concomitant]
  4. RABEPRAZOLE SODIUM [Concomitant]
  5. RANEXA [Concomitant]
  6. DISPIRIN [Concomitant]
  7. METALYSE [Suspect]
     Indication: ACUTE MYOCARDIAL INFARCTION
     Route: 042
     Dates: start: 20120312

REACTIONS (1)
  - MYOCARDIAL INFARCTION [None]
